FAERS Safety Report 10233727 (Version 1)
Quarter: 2014Q2

REPORT INFORMATION
  Report Type: Spontaneous
  Country: CA (occurrence: None)
  Receive Date: 20140610
  Receipt Date: 20140610
  Transmission Date: 20141212
  Serious: Yes (Other)
  Sender: FDA-Public Use
  Company Number: AMAG201400184

PATIENT
  Sex: Female

DRUGS (7)
  1. FERAHEME (FERUMOXYTOL) INJECTION, 510MG [Suspect]
     Indication: ANAEMIA
     Dosage: SINGLE IV PUSH.
     Route: 042
     Dates: start: 20140527, end: 20140527
  2. EPIPEN (EPINEPHRINE) [Concomitant]
  3. METHOTREXATE (METHTREXATE SODIUM) [Concomitant]
  4. RANITIDINE (RANITIDINE HYDROCHLORIDE) [Concomitant]
  5. LYRICA (PREGABALIN) [Concomitant]
  6. QUESTRAN (COLESTYRAMINE) [Concomitant]
  7. FOLIC ACID (FOLIC ACID) [Concomitant]

REACTIONS (6)
  - Restless legs syndrome [None]
  - Chest discomfort [None]
  - Chest pain [None]
  - Anxiety [None]
  - Dry mouth [None]
  - Nausea [None]
